FAERS Safety Report 20141942 (Version 1)
Quarter: 2021Q4

REPORT INFORMATION
  Report Type: Other
  Country: AU (occurrence: AU)
  Receive Date: 20211202
  Receipt Date: 20211202
  Transmission Date: 20220303
  Serious: Yes (Other)
  Sender: FDA-Public Use
  Company Number: AU-ASTELLAS-2021US044530

PATIENT
  Sex: Male

DRUGS (5)
  1. TACROLIMUS [Suspect]
     Active Substance: TACROLIMUS
     Indication: Antisynthetase syndrome
     Dosage: 3 MG, EVERY 12 HOURS (3 MILLIGRAM , INTERVAL: 12 HOUR)
     Route: 064
  2. ASPIRIN [Suspect]
     Active Substance: ASPIRIN
     Indication: Antisynthetase syndrome
     Dosage: 100 MG, ONCE DAILY (100 MILLIGRAM , INTERVAL: 1 DAY)
     Route: 064
  3. ENOXAPARIN [Suspect]
     Active Substance: ENOXAPARIN
     Indication: Antisynthetase syndrome
     Dosage: 40 MG, ONCE DAILY (40 MILLIGRAM , INTERVAL: 1 DAY)
     Route: 064
  4. PREDNISOLONE [Suspect]
     Active Substance: PREDNISOLONE
     Indication: Antisynthetase syndrome
     Dosage: 3 MG, ONCE DAILY (3 MILLIGRAM , INTERVAL: 1 DAY)
     Route: 064
  5. HYDROXYCHLOROQUINE [Suspect]
     Active Substance: HYDROXYCHLOROQUINE
     Indication: Antisynthetase syndrome
     Dosage: 200 MG, ONCE DAILY (200 MILLIGRAM , INTERVAL: 1 DAY)
     Route: 064

REACTIONS (4)
  - Premature baby [Unknown]
  - Foetal exposure during pregnancy [Unknown]
  - Product use in unapproved indication [Unknown]
  - Off label use [Unknown]
